FAERS Safety Report 18052549 (Version 2)
Quarter: 2020Q3

REPORT INFORMATION
  Report Type: Report from Study
  Country: IN (occurrence: IN)
  Receive Date: 20200721
  Receipt Date: 20200920
  Transmission Date: 20201103
  Serious: Yes (Hospitalization, Other)
  Sender: FDA-Public Use
  Company Number: NVSC2020IN205717

PATIENT
  Age: 59 Year
  Sex: Male

DRUGS (1)
  1. VYMADA [Suspect]
     Active Substance: SACUBITRIL\VALSARTAN
     Indication: CARDIAC FAILURE
     Dosage: 50 MG, BID
     Route: 048
     Dates: start: 20190910

REACTIONS (5)
  - Pneumonia [Recovering/Resolving]
  - Coronavirus test positive [Unknown]
  - Dyspnoea [Recovering/Resolving]
  - Oropharyngeal pain [Unknown]
  - Cough [Unknown]

NARRATIVE: CASE EVENT DATE: 20200712
